FAERS Safety Report 5028937-3 (Version None)
Quarter: 2006Q2

REPORT INFORMATION
  Report Type: 
  Country: None (occurrence: None)
  Receive Date: 20060501
  Receipt Date: 20060103
  Transmission Date: 20061013
  Serious: No
  Sender: FDA-Public Use
  Company Number: 200610077US

PATIENT
  Age: 30 Year
  Sex: Female
  Weight: 54.54 kg

DRUGS (5)
  1. KETEK [Suspect]
     Indication: SINUSITIS
     Dosage: 400 (2 TABS) MG QD PO
     Route: 048
     Dates: start: 20051228, end: 20051228
  2. CHLORPHENIRAMINE MALEATE [Concomitant]
  3. PSEUDOEPHEDRINE HYDROCHLORIDE [Concomitant]
  4. HYOSCINE METHONITRATE (MESCOLOR) [Concomitant]
  5. ETHINYLESTRADIOL, NORGESTREL (ETHINYL ESTRADIOL W/ NORGESTREL) [Concomitant]

REACTIONS (2)
  - DIZZINESS [None]
  - VISION BLURRED [None]
